FAERS Safety Report 13069862 (Version 1)
Quarter: 2016Q4

REPORT INFORMATION
  Report Type: Spontaneous
  Country: FR (occurrence: FR)
  Receive Date: 20161228
  Receipt Date: 20161228
  Transmission Date: 20170207
  Serious: Yes (Hospitalization)
  Sender: FDA-Public Use
  Company Number: FR-NOVOPROD-524665

PATIENT
  Age: 62 Year
  Sex: Female

DRUGS (3)
  1. NOVOMIX [Suspect]
     Active Substance: INSULIN ASPART
     Dosage: DECREASE THE INSULIN DOSE IN MORNING AT 18 IU
     Route: 058
  2. NOVOMIX [Suspect]
     Active Substance: INSULIN ASPART
     Indication: TYPE 2 DIABETES MELLITUS
     Dosage: 46 IU, QD (24 IU IN MORNING AND 22 IU IN EVENING)
     Route: 058
  3. METFORMINE [Suspect]
     Active Substance: METFORMIN HYDROCHLORIDE
     Indication: TYPE 2 DIABETES MELLITUS
     Dosage: 850 MG, BID
     Route: 048

REACTIONS (3)
  - Disturbance in attention [Recovered/Resolved]
  - Drug administration error [Recovered/Resolved]
  - Hypoglycaemia [Recovered/Resolved]

NARRATIVE: CASE EVENT DATE: 20161101
